FAERS Safety Report 5674650-9 (Version None)
Quarter: 2008Q1

REPORT INFORMATION
  Report Type: 
  Country: None (occurrence: None)
  Receive Date: 20080320
  Receipt Date: 20080313
  Transmission Date: 20080703
  Serious: Yes (Hospitalization, Disabling, Other)
  Sender: FDA-Public Use
  Company Number: A0709079A

PATIENT
  Age: 33 Year
  Sex: Female
  Weight: 70 kg

DRUGS (8)
  1. TYKERB [Suspect]
     Indication: BREAST CANCER
     Route: 048
  2. FOLIC ACID [Concomitant]
     Dosage: 1MG PER DAY
     Route: 048
  3. PRILOSEC [Concomitant]
     Dosage: 20MG PER DAY
     Route: 048
  4. CELEXA [Concomitant]
     Dosage: 45MG PER DAY
     Route: 048
  5. LORAZEPAM [Concomitant]
     Dosage: 1MG AT NIGHT
     Route: 048
  6. KEPPRA [Concomitant]
     Dosage: 500MG TWICE PER DAY
     Route: 048
  7. XELODA [Concomitant]
  8. BENTYL [Concomitant]
     Route: 048

REACTIONS (2)
  - DRUG INEFFECTIVE [None]
  - PANCREATITIS [None]
